FAERS Safety Report 5729667-2 (Version None)
Quarter: 2008Q2

REPORT INFORMATION
  Report Type: 
  Country: None (occurrence: None)
  Receive Date: 20080506
  Receipt Date: 20080502
  Transmission Date: 20081010
  Serious: Yes (Hospitalization)
  Sender: FDA-Public Use
  Company Number: US-BOEHRINGER INGELHEIM GMBH, GERMANY-2008-BP-06920RO

PATIENT
  Age: 42 Year
  Sex: Male

DRUGS (2)
  1. LITHIUM CARBONATE [Suspect]
     Indication: AGGRESSION
  2. LITHIUM CARBONATE [Suspect]

REACTIONS (3)
  - BRUGADA SYNDROME [None]
  - ELECTROCARDIOGRAM ST SEGMENT ELEVATION [None]
  - ELECTROCARDIOGRAM T WAVE INVERSION [None]
